FAERS Safety Report 5699280-4 (Version None)
Quarter: 2008Q2

REPORT INFORMATION
  Report Type: 
  Country: None (occurrence: None)
  Receive Date: 20080404
  Receipt Date: 20080324
  Transmission Date: 20081010
  Serious: Yes (Hospitalization)
  Sender: FDA-Public Use
  Company Number: CHPA2008US05318

PATIENT
  Age: 51 Year
  Sex: Female

DRUGS (2)
  1. MAALOX MS TOTAL STOMACH RELIEF (NCH)(BISMUTH SUBSALICYLATE) SUSPENSION [Suspect]
     Indication: DYSPEPSIA
     Dosage: TOOK SMALL SWIGS (7 TIMES), ORAL
     Route: 048
     Dates: start: 20080321, end: 20080322
  2. ACETYLSALICYLIC ACID (NCH)(ACETYLSALICYLIC ACID) UNKNOWN [Suspect]

REACTIONS (4)
  - DRUG HYPERSENSITIVITY [None]
  - EAR DISCOMFORT [None]
  - TINNITUS [None]
  - WRONG TECHNIQUE IN DRUG USAGE PROCESS [None]
